FAERS Safety Report 4768449-5 (Version None)
Quarter: 2005Q3

REPORT INFORMATION
  Report Type: 
  Country: None (occurrence: None)
  Receive Date: 20050906
  Receipt Date: 20050210
  Transmission Date: 20060218
  Serious: No
  Sender: FDA-Public Use
  Company Number: 2005-BP-01172BP

PATIENT
  Sex: Female

DRUGS (8)
  1. SPIRIVA [Suspect]
     Indication: ASTHMA
     Dosage: 18 MCG (18 MCG, QD), IH
     Route: 055
     Dates: start: 20040601
  2. SPIRIVA [Suspect]
  3. FLOVENT [Concomitant]
  4. THEOPHYLLINE [Concomitant]
  5. XOLAIR [Concomitant]
  6. PROTONIX [Concomitant]
  7. ACTONEL [Concomitant]
  8. ZERTEC D [Concomitant]

REACTIONS (2)
  - DYSPNOEA [None]
  - STATUS ASTHMATICUS [None]
